FAERS Safety Report 24159446 (Version 1)
Quarter: 2024Q3

REPORT INFORMATION
  Report Type: Spontaneous
  Country: ES (occurrence: ES)
  Receive Date: 20240731
  Receipt Date: 20240731
  Transmission Date: 20241016
  Serious: No
  Sender: MENARINI
  Company Number: None

PATIENT
  Age: 65 Year
  Sex: Male

DRUGS (11)
  1. RANEXA [Suspect]
     Active Substance: RANOLAZINE
     Indication: Cardiac failure
     Dosage: 750 MG, QD
     Route: 048
     Dates: start: 20240326
  2. RAMIPRIL [Concomitant]
     Active Substance: RAMIPRIL
     Indication: Cardiac failure
     Dosage: 5 MG
     Route: 048
     Dates: start: 20230906
  3. CARVEDILOL [Concomitant]
     Active Substance: CARVEDILOL
     Indication: Arrhythmia
     Dosage: 25 MG, QD
     Route: 048
     Dates: start: 20240206
  4. ASPIRIN [Concomitant]
     Active Substance: ASPIRIN
     Indication: Cardiac failure
     Dosage: 100 MG
     Route: 048
     Dates: start: 20160813
  5. ATORVASTATIN CALCIUM\EZETIMIBE [Concomitant]
     Active Substance: ATORVASTATIN CALCIUM\EZETIMIBE
     Indication: Cardiac failure
     Route: 048
     Dates: start: 20230417
  6. LEVOFLOXACINO NORMON [Concomitant]
     Indication: Wound
     Route: 048
     Dates: start: 20231230
  7. PARACETAMOL CINFA [Concomitant]
     Indication: Arthralgia
     Dosage: 1 GRAM
     Route: 048
     Dates: start: 20160812
  8. TRAMADOL/PARACETAMOL NORMO [Concomitant]
     Indication: Arthralgia
     Route: 048
     Dates: start: 20220804
  9. PANTOPRAZOL NORMON [Concomitant]
     Indication: Cardiac failure
     Dosage: 40 MG
     Route: 048
     Dates: start: 20160813
  10. EPLERENONE [Concomitant]
     Active Substance: EPLERENONE
     Indication: Cardiac failure
     Dosage: 25 MG
     Route: 048
     Dates: start: 20230906
  11. CLOPIDOGREL BESILATE [Concomitant]
     Active Substance: CLOPIDOGREL BESILATE
     Indication: Stent placement
     Dosage: 75 MG
     Route: 048
     Dates: start: 20230404

REACTIONS (2)
  - Insomnia [Unknown]
  - Product use in unapproved indication [Not Recovered/Not Resolved]

NARRATIVE: CASE EVENT DATE: 20240326
